FAERS Safety Report 13567370 (Version 1)
Quarter: 2017Q2

REPORT INFORMATION
  Report Type: Spontaneous
  Country: US (occurrence: US)
  Receive Date: 20170519
  Receipt Date: 20170519
  Transmission Date: 20170830
  Serious: No
  Sender: FDA-Public Use
  Company Number: None

PATIENT
  Age: 52 Year
  Sex: Female

DRUGS (1)
  1. AMPYRA [Suspect]
     Active Substance: DALFAMPRIDINE
     Indication: MULTIPLE SCLEROSIS
     Route: 048
     Dates: start: 20120425

REACTIONS (3)
  - CD8 lymphocytes decreased [None]
  - CD4 lymphocytes decreased [None]
  - T-lymphocyte count decreased [None]

NARRATIVE: CASE EVENT DATE: 20170411
